FAERS Safety Report 10335049 (Version 1)
Quarter: 2014Q3

REPORT INFORMATION
  Report Type: Spontaneous
  Country: US (occurrence: US)
  Receive Date: 20140723
  Receipt Date: 20140723
  Transmission Date: 20150326
  Serious: Yes (Other)
  Sender: FDA-Public Use
  Company Number: US-ELI_LILLY_AND_COMPANY-US201407006827

PATIENT
  Sex: Female

DRUGS (1)
  1. CYMBALTA [Suspect]
     Active Substance: DULOXETINE HYDROCHLORIDE
     Indication: NEUROPATHY PERIPHERAL
     Dosage: 1 DF, UNKNOWN
     Route: 065

REACTIONS (5)
  - Diabetes mellitus [Unknown]
  - Palpitations [Unknown]
  - Renal injury [Unknown]
  - Off label use [Recovered/Resolved]
  - Liver injury [Unknown]
